FAERS Safety Report 8326938-0 (Version None)
Quarter: 2012Q2

REPORT INFORMATION
  Report Type: 
  Country: None (occurrence: None)
  Receive Date: 20120501
  Receipt Date: 20120425
  Transmission Date: 20120825
  Serious: Yes (Other)
  Sender: FDA-Public Use
  Company Number: VE-ELI_LILLY_AND_COMPANY-VE201204004209

PATIENT
  Age: 49 Year
  Sex: Male

DRUGS (7)
  1. DIAMICRON [Concomitant]
     Dosage: UNK
  2. HUMALOG [Suspect]
     Indication: TYPE 1 DIABETES MELLITUS
     Dosage: UNK, TID
  3. HUMALOG [Suspect]
     Dosage: UNK, TID
  4. PLAVIX [Concomitant]
     Dosage: UNK
  5. HYZAAR [Concomitant]
     Dosage: UNK
  6. CORASPIRINA [Concomitant]
     Dosage: UNK
  7. ENALAPRIL MALEATE [Concomitant]
     Dosage: UNK

REACTIONS (4)
  - CARDIOVASCULAR DISORDER [None]
  - DRUG INEFFECTIVE [None]
  - HYPERGLYCAEMIA [None]
  - WRONG DRUG ADMINISTERED [None]
